FAERS Safety Report 21773133 (Version 1)
Quarter: 2022Q4

REPORT INFORMATION
  Report Type: Spontaneous
  Country: US (occurrence: US)
  Receive Date: 20221223
  Receipt Date: 20221223
  Transmission Date: 20230113
  Serious: Yes (Other)
  Sender: FDA-Public Use
  Company Number: US-BIOGEN-2022BI01176316

PATIENT
  Sex: Male
  Weight: 49.940 kg

DRUGS (13)
  1. SPINRAZA [Suspect]
     Active Substance: NUSINERSEN
     Indication: Spinal muscular atrophy
     Dosage: LOADING DOSE
     Route: 050
  2. SPINRAZA [Suspect]
     Active Substance: NUSINERSEN
     Dosage: LOADING DOSE
     Route: 050
  3. SPINRAZA [Suspect]
     Active Substance: NUSINERSEN
     Dosage: LOADING DOSE
     Route: 050
  4. SPINRAZA [Suspect]
     Active Substance: NUSINERSEN
     Dosage: LOADING DOSE
     Route: 050
  5. SPINRAZA [Suspect]
     Active Substance: NUSINERSEN
     Dosage: MAINTENANCE DOSE
     Route: 050
  6. PULMICORT TURBUHALER [Concomitant]
     Active Substance: BUDESONIDE
     Indication: Product used for unknown indication
     Route: 050
  7. ACETAMINOPHEN [Concomitant]
     Active Substance: ACETAMINOPHEN
     Indication: Pyrexia
     Dosage: EVERY 4 HOURS AS NEEDED FOR FEVER
     Route: 050
  8. ALBUTEROL [Concomitant]
     Active Substance: ALBUTEROL
     Indication: Wheezing
     Route: 050
  9. BUDESONIDE\FORMOTEROL [Concomitant]
     Active Substance: BUDESONIDE\FORMOTEROL
     Indication: Product used for unknown indication
     Dosage: 80-4.5 MCG/ACT INHALER?2 PUFFS 2 TIES DAILY
     Route: 050
  10. Fluticasone-Salmeterol [Concomitant]
     Indication: Product used for unknown indication
     Dosage: 115-21 MCG/ACT INHALER?2 PUFFS TWO TIMES DAILY
     Route: 050
  11. Levalbuterol (Xopenex) [Concomitant]
     Indication: Product used for unknown indication
     Dosage: 1 AMP BY NEBULIZATION EVERY 4 HOURS AS NEEDED
     Route: 050
  12. Guaifenesin (Mucinex PO) [Concomitant]
     Indication: Product used for unknown indication
     Route: 050
  13. LORATADINE [Concomitant]
     Active Substance: LORATADINE
     Indication: Multiple allergies
     Dosage: 10 MG BY MOUTH DAILY AS NEEDED FOR ALLERGIES
     Route: 050

REACTIONS (1)
  - Scoliosis [Unknown]
